FAERS Safety Report 7730269-7 (Version None)
Quarter: 2011Q3

REPORT INFORMATION
  Report Type: 
  Country: None (occurrence: None)
  Receive Date: 20110906
  Receipt Date: 20110905
  Transmission Date: 20111222
  Serious: Yes (Death)
  Sender: FDA-Public Use
  Company Number: PHHY2011DE78558

PATIENT
  Age: 89 Year
  Sex: Female
  Weight: 50 kg

DRUGS (2)
  1. MOLSIDOMINE [Concomitant]
     Dosage: 8 MG, PER DAY
     Route: 048
     Dates: start: 20110429
  2. EXJADE [Suspect]
     Dosage: UNK UKN, UNK
     Route: 065

REACTIONS (2)
  - DEATH [None]
  - BLOOD CREATININE ABNORMAL [None]
